FAERS Safety Report 6020619-4 (Version None)
Quarter: 2008Q4

REPORT INFORMATION
  Report Type: 
  Country: None (occurrence: None)
  Receive Date: 20081222
  Receipt Date: 20081215
  Transmission Date: 20090506
  Serious: Yes (Disabling)
  Sender: FDA-Public Use
  Company Number: GB-1168126

PATIENT
  Age: 50 Year
  Sex: Female

DRUGS (1)
  1. TIMOLOL MALEATE [Suspect]
     Indication: OPEN ANGLE GLAUCOMA
     Dosage: 1 DF 1/1TOTAL OPHTHALMIC
     Route: 047

REACTIONS (1)
  - DEAFNESS UNILATERAL [None]
